FAERS Safety Report 17844892 (Version 3)
Quarter: 2020Q2

REPORT INFORMATION
  Report Type: Spontaneous
  Country: US (occurrence: US)
  Receive Date: 20200601
  Receipt Date: 20200626
  Transmission Date: 20200714
  Serious: No
  Sender: FDA-Public Use
  Company Number: US-GLAXOSMITHKLINE-US2020AMR090918

PATIENT

DRUGS (2)
  1. FLOVENT HFA [Suspect]
     Active Substance: FLUTICASONE PROPIONATE
     Indication: PRODUCT USED FOR UNKNOWN INDICATION
     Dosage: 2 PUFF(S), BID
     Route: 065
  2. ALBUTEROL SULFATE. [Suspect]
     Active Substance: ALBUTEROL SULFATE
     Indication: PRODUCT USED FOR UNKNOWN INDICATION
     Dosage: UNK
     Route: 065

REACTIONS (17)
  - Pruritus [Unknown]
  - Rhinorrhoea [Unknown]
  - Productive cough [Not Recovered/Not Resolved]
  - Head discomfort [Unknown]
  - Headache [Unknown]
  - Cough [Not Recovered/Not Resolved]
  - Dizziness [Unknown]
  - Asthenia [Unknown]
  - Dyspnoea [Unknown]
  - Decreased appetite [Unknown]
  - Nausea [Unknown]
  - Fatigue [Unknown]
  - Adverse drug reaction [Unknown]
  - Dysphonia [Unknown]
  - Rash [Unknown]
  - Diarrhoea [Unknown]
  - Paraesthesia oral [Unknown]
